FAERS Safety Report 5532545-5 (Version None)
Quarter: 2007Q4

REPORT INFORMATION
  Report Type: 
  Country: None (occurrence: None)
  Receive Date: 20071203
  Receipt Date: 20071127
  Transmission Date: 20080405
  Serious: No
  Sender: FDA-Public Use
  Company Number: US-BOEHRINGER INGELHEIM PHARMACEUTICALS, INC.-2007-BP-23019BP

PATIENT
  Sex: Male

DRUGS (13)
  1. SPIRIVA [Suspect]
     Indication: ASTHMA
     Route: 055
     Dates: start: 20050101
  2. SPIRIVA [Suspect]
     Indication: CHRONIC OBSTRUCTIVE PULMONARY DISEASE
  3. SPIRIVA [Suspect]
     Indication: EMPHYSEMA
  4. LYRICA [Concomitant]
  5. METHADONE [Concomitant]
  6. VICODIN [Concomitant]
  7. VALIUM [Concomitant]
  8. VOLTAREN [Concomitant]
  9. FIORICET [Concomitant]
  10. FLOMAX [Concomitant]
  11. ALLEGRA D 24 HOUR [Concomitant]
  12. RESTORIL [Concomitant]
  13. CYMBALTA [Concomitant]

REACTIONS (2)
  - DRUG INEFFECTIVE [None]
  - DYSPNOEA [None]
